FAERS Safety Report 7409139-X (Version None)
Quarter: 2011Q2

REPORT INFORMATION
  Report Type: 
  Country: None (occurrence: None)
  Receive Date: 20110412
  Receipt Date: 20110318
  Transmission Date: 20111010
  Serious: Yes (Hospitalization)
  Sender: FDA-Public Use
  Company Number: US-ROCHE-768581

PATIENT
  Age: 60 Year
  Sex: Female
  Weight: 59 kg

DRUGS (12)
  1. ACTEMRA [Suspect]
     Dosage: FIRST INFUSION
     Route: 042
     Dates: start: 20101221, end: 20101221
  2. CYMBALTA [Concomitant]
  3. DEPO-MEDROL [Concomitant]
     Indication: PREMEDICATION
     Route: 042
  4. ACTEMRA [Suspect]
     Dosage: SECOND INFUSION
     Route: 042
     Dates: start: 20110121, end: 20110121
  5. NEURONTIN [Concomitant]
  6. NIFEDIPINE [Concomitant]
  7. PROTONIX [Concomitant]
  8. ALBUTEROL [Concomitant]
  9. METOPROLOL TARTRATE [Concomitant]
     Indication: HYPERTENSION
     Dosage: DOSE: 50 AM AND PM
  10. ACTEMRA [Suspect]
     Route: 042
     Dates: start: 20110222
  11. BENADRYL [Concomitant]
     Indication: PREMEDICATION
     Route: 048
  12. ACETAMINOPHEN [Concomitant]
     Indication: PREMEDICATION
     Route: 048

REACTIONS (4)
  - SYSTEMIC LUPUS ERYTHEMATOSUS [None]
  - ASTHENIA [None]
  - FALL [None]
  - HYPOTENSION [None]
